FAERS Safety Report 9830192 (Version 1)
Quarter: 2014Q1

REPORT INFORMATION
  Report Type: Spontaneous
  Country: PL (occurrence: PL)
  Receive Date: 20140120
  Receipt Date: 20140120
  Transmission Date: 20141002
  Serious: Yes (Hospitalization)
  Sender: FDA-Public Use
  Company Number: PL-MYLANLABS-2014S1000669

PATIENT
  Age: 85 Year
  Sex: Female

DRUGS (2)
  1. SOTALOL [Suspect]
     Dosage: 120 MG/D
     Route: 065
  2. CARVEDILOL [Suspect]
     Dosage: 6.25 MG/D
     Route: 065

REACTIONS (5)
  - Torsade de pointes [Unknown]
  - Electrocardiogram QT prolonged [Unknown]
  - Heart alternation [Unknown]
  - Electrocardiogram ST segment [Unknown]
  - Medication error [Unknown]
